FAERS Safety Report 25797445 (Version 1)
Quarter: 2025Q3

REPORT INFORMATION
  Report Type: Spontaneous
  Country: EU (occurrence: EU)
  Receive Date: 20250912
  Receipt Date: 20250912
  Transmission Date: 20251021
  Serious: Yes (Hospitalization, Other)
  Sender: AUROBINDO
  Company Number: EU-DKMA-31018905

PATIENT
  Age: 62 Year
  Sex: Female

DRUGS (8)
  1. LAMOTRIGINE [Suspect]
     Active Substance: LAMOTRIGINE
     Indication: Depression
     Dosage: 50 MILLIGRAM, ONCE A DAY (INCREASED FROM 25 MG TO 50 MG AFTER 14 DAYS OF TREATMENT)
     Route: 048
     Dates: start: 20250712, end: 20250808
  2. Sumatriptan accord [Concomitant]
     Indication: Migraine
     Route: 065
     Dates: start: 20181121
  3. ACETAMINOPHEN [Concomitant]
     Active Substance: ACETAMINOPHEN
     Indication: Pain
     Route: 065
     Dates: start: 20250219
  4. Efastad [Concomitant]
     Indication: Depression
     Route: 065
     Dates: start: 20250615
  5. VEOZAH [Concomitant]
     Active Substance: FEZOLINETANT
     Indication: Menopausal symptoms
     Dosage: 45 MILLIGRAM, ONCE A DAY
     Route: 065
     Dates: start: 20250618
  6. PANTOPRAZOLE [Concomitant]
     Active Substance: PANTOPRAZOLE
     Indication: Gastrooesophageal reflux disease
     Route: 065
     Dates: start: 20230911
  7. ATORVASTATIN [Concomitant]
     Active Substance: ATORVASTATIN
     Indication: Hypercholesterolaemia
     Route: 065
     Dates: start: 20230911
  8. VAGIFEM [Concomitant]
     Active Substance: ESTRADIOL
     Indication: Hormone replacement therapy
     Route: 065
     Dates: start: 20230413

REACTIONS (4)
  - Meningitis [Unknown]
  - Headache [Unknown]
  - Hyperacusis [Unknown]
  - Photophobia [Unknown]

NARRATIVE: CASE EVENT DATE: 20250802
